FAERS Safety Report 5448024-X (Version None)
Quarter: 2007Q3

REPORT INFORMATION
  Report Type: 
  Country: None (occurrence: None)
  Receive Date: 20070910
  Receipt Date: 20070829
  Transmission Date: 20080115
  Serious: Yes (Other)
  Sender: FDA-Public Use
  Company Number: US-PFIZER INC-2007073138

PATIENT
  Sex: Female

DRUGS (2)
  1. CHANTIX [Suspect]
     Indication: SMOKING CESSATION THERAPY
  2. MUCINEX [Concomitant]

REACTIONS (5)
  - FLATULENCE [None]
  - HEARING IMPAIRED [None]
  - SENSORY DISTURBANCE [None]
  - VISUAL DISTURBANCE [None]
  - VOMITING [None]
